FAERS Safety Report 17447080 (Version 2)
Quarter: 2020Q1

REPORT INFORMATION
  Report Type: Report from Study
  Country: CA (occurrence: CA)
  Receive Date: 20200221
  Receipt Date: 20200228
  Transmission Date: 20200409
  Serious: Yes (Other)
  Sender: FDA-Public Use
  Company Number: CA-JNJFOC-20200133290

PATIENT
  Age: 54 Year
  Sex: Male
  Weight: 86 kg

DRUGS (1)
  1. STELARA [Suspect]
     Active Substance: USTEKINUMAB
     Indication: CROHN^S DISEASE
     Route: 058
     Dates: start: 20171101

REACTIONS (7)
  - Sepsis [Unknown]
  - Gastrointestinal obstruction [Unknown]
  - Influenza [Unknown]
  - Abdominal pain [Recovering/Resolving]
  - Thrombosis [Unknown]
  - Cellulitis [Unknown]
  - Injection site infection [Unknown]

NARRATIVE: CASE EVENT DATE: 20200119
